FAERS Safety Report 4382549-3 (Version None)
Quarter: 2004Q2

REPORT INFORMATION
  Report Type: 
  Country: None (occurrence: None)
  Receive Date: 20040609
  Receipt Date: 20040210
  Transmission Date: 20050107
  Serious: Yes (Other)
  Sender: FDA-Public Use
  Company Number: 601280

PATIENT
  Age: 66 Year
  Sex: Male

DRUGS (1)
  1. ALBUMIN (HUMAN) [Suspect]
     Dosage: 100 ML; PRN
     Dates: start: 19981028, end: 19981028

REACTIONS (2)
  - HEPATITIS C VIRUS [None]
  - PHARMACEUTICAL PRODUCT COMPLAINT [None]
